FAERS Safety Report 19087539 (Version 1)
Quarter: 2021Q2

REPORT INFORMATION
  Report Type: Spontaneous
  Country: US (occurrence: US)
  Receive Date: 20210402
  Receipt Date: 20210402
  Transmission Date: 20210717
  Serious: Yes (Other)
  Sender: FDA-Public Use
  Company Number: US-ROCHE-2797265

PATIENT
  Age: 72 Year
  Sex: Male

DRUGS (2)
  1. KOGENATE [Concomitant]
     Active Substance: ANTIHEMOPHILIC FACTOR, HUMAN RECOMBINANT
     Indication: FACTOR VIII DEFICIENCY
     Dosage: 6000 UNITS (+/?10%)
     Route: 042
  2. HEMLIBRA [Suspect]
     Active Substance: EMICIZUMAB-KXWH
     Indication: FACTOR VIII DEFICIENCY
     Dosage: MAINTENANCE DOSE: INJECT HEMLIBRA 180MG (1.2ML); STRENGTH: 60 MG/0.4 ML VIAL
     Route: 058
     Dates: start: 202005

REACTIONS (2)
  - Cancer surgery [Unknown]
  - Haemorrhage [Unknown]

NARRATIVE: CASE EVENT DATE: 20210308
